FAERS Safety Report 9059785 (Version 1)
Quarter: 2013Q1

REPORT INFORMATION
  Report Type: Spontaneous
  Country: US (occurrence: US)
  Receive Date: 20130212
  Receipt Date: 20130212
  Transmission Date: 20140127
  Serious: Yes (Other)
  Sender: FDA-Public Use
  Company Number: US-JNJFOC-20110506075

PATIENT
  Sex: Male

DRUGS (7)
  1. RISPERIDONE [Suspect]
     Indication: CEREBRAL PALSY
     Route: 048
  2. RISPERIDONE [Suspect]
     Indication: CEREBRAL PALSY
     Route: 048
     Dates: start: 201006
  3. RISPERIDONE [Suspect]
     Indication: IRRITABILITY
     Route: 048
  4. RISPERIDONE [Suspect]
     Indication: IRRITABILITY
     Route: 048
     Dates: start: 201006
  5. VITAMIN C [Concomitant]
     Indication: VITAMIN SUPPLEMENTATION
     Route: 048
  6. MULTIPLE  VITAMIN [Concomitant]
     Indication: VITAMIN SUPPLEMENTATION
     Route: 048
  7. OMEGA THREE FATTY ACIDS [Concomitant]
     Indication: MEDICAL DIET
     Route: 048

REACTIONS (4)
  - Weight increased [Not Recovered/Not Resolved]
  - Hunger [Not Recovered/Not Resolved]
  - Blood pressure fluctuation [Recovering/Resolving]
  - Off label use [Not Recovered/Not Resolved]
